FAERS Safety Report 6336765-1 (Version None)
Quarter: 2009Q3

REPORT INFORMATION
  Report Type: 
  Country: None (occurrence: None)
  Receive Date: 20090901
  Receipt Date: 20090820
  Transmission Date: 20100115
  Serious: Yes (Congenital Anomaly)
  Sender: FDA-Public Use
  Company Number: US-PFIZER INC-001-0945-991109

PATIENT
  Sex: Male

DRUGS (3)
  1. NEURONTIN [Suspect]
     Indication: EPILEPSY
     Dosage: 300 MG, 1X/DAY
     Route: 064
  2. DEPAKOTE [Suspect]
     Indication: EPILEPSY
     Dosage: 250 MG, 1X/DAY
     Route: 064
  3. RITALIN [Concomitant]

REACTIONS (1)
  - POLYDACTYLY [None]
